FAERS Safety Report 8185622-7 (Version None)
Quarter: 2012Q1

REPORT INFORMATION
  Report Type: 
  Country: None (occurrence: None)
  Receive Date: 20120305
  Receipt Date: 20120227
  Transmission Date: 20120608
  Serious: Yes (Hospitalization, Other)
  Sender: FDA-Public Use
  Company Number: US-PFIZER INC-2012032316

PATIENT
  Sex: Female
  Weight: 99.8 kg

DRUGS (15)
  1. CARAFATE [Concomitant]
     Dosage: UNK
     Route: 048
     Dates: start: 20090716
  2. LYRICA [Suspect]
     Indication: NEUROPATHY PERIPHERAL
     Dosage: 150 MG, 2X/DAY
     Route: 048
     Dates: start: 20090730
  3. METFORMIN [Concomitant]
     Dosage: 500 MG, 2X/DAY
     Route: 048
     Dates: start: 20091208
  4. LASIX [Concomitant]
     Dosage: 40 MG, ALTERNATE DAY
     Dates: start: 20080310
  5. TIZANIDINE [Concomitant]
     Indication: BACK PAIN
     Dosage: 4 MG, AS NEEDED
  6. TRICOR [Concomitant]
     Dosage: 145 MG, 1X/DAY
     Route: 048
     Dates: start: 20100219
  7. FLUTICASONE PROPIONATE [Concomitant]
     Dosage: UNK
     Dates: start: 20040831
  8. ALBUTEROL SULFATE [Concomitant]
     Dosage: 1 DF, EVERY 4 HRS
     Dates: start: 20110716
  9. XANAX [Concomitant]
     Dosage: 1 MG, 3X/DAY
     Route: 048
     Dates: start: 20040830
  10. METOPROLOL TARTRATE [Concomitant]
     Dosage: 50 MG, 2X/DAY
     Route: 048
     Dates: start: 20090203
  11. GLYBURIDE [Concomitant]
     Dosage: 5 MG, 1X/DAY
     Route: 048
     Dates: start: 20091208
  12. KLOR-CON [Concomitant]
     Dosage: 10 MEQ, 1X/DAY
     Route: 048
     Dates: start: 20090323
  13. OMEPRAZOLE [Concomitant]
     Dosage: 40 MG, 2X/DAY
     Route: 048
     Dates: start: 20100127
  14. CIPROFLOXACIN [Concomitant]
  15. AMITRIPTYLINE [Concomitant]
     Dosage: 25MG DAILY
     Route: 048
     Dates: start: 20100216

REACTIONS (12)
  - TRANSIENT ISCHAEMIC ATTACK [None]
  - DEHYDRATION [None]
  - ATAXIA [None]
  - BALANCE DISORDER [None]
  - RENAL FAILURE [None]
  - MASTITIS [None]
  - SPEECH DISORDER [None]
  - CELLULITIS [None]
  - DIZZINESS [None]
  - FATIGUE [None]
  - SUICIDAL IDEATION [None]
  - DEPRESSION [None]
